FAERS Safety Report 5747793-9 (Version None)
Quarter: 2008Q2

REPORT INFORMATION
  Report Type: 
  Country: None (occurrence: None)
  Receive Date: 20080523
  Receipt Date: 20080519
  Transmission Date: 20081010
  Serious: Yes (Other)
  Sender: FDA-Public Use
  Company Number: A0728545A

PATIENT
  Age: 67 Year
  Sex: Female

DRUGS (3)
  1. ADVAIR DISKUS 100/50 [Suspect]
     Indication: DRUG USE FOR UNKNOWN INDICATION
     Route: 055
  2. SPIRIVA [Concomitant]
  3. CONCURRENT MEDICATIONS [Concomitant]

REACTIONS (9)
  - ARTERIAL OCCLUSIVE DISEASE [None]
  - CARDIAC MURMUR [None]
  - HIP FRACTURE [None]
  - LOWER LIMB FRACTURE [None]
  - LUNG NEOPLASM MALIGNANT [None]
  - OSTEOPOROSIS [None]
  - PNEUMONIA [None]
  - SURGERY [None]
  - WEIGHT DECREASED [None]
